FAERS Safety Report 5098870-X (Version None)
Quarter: 2006Q3

REPORT INFORMATION
  Report Type: 
  Country: None (occurrence: None)
  Receive Date: 20060905
  Receipt Date: 20060822
  Transmission Date: 20061208
  Serious: Yes (Death)
  Sender: FDA-Public Use
  Company Number: 228992

PATIENT
  Age: 20 Year
  Sex: Male

DRUGS (5)
  1. NUTROPIN AQ [Suspect]
     Indication: OPTIC TRACT GLIOMA
     Dosage: 2.6 MG, QD, SUBCUTANEOUS
     Route: 058
     Dates: start: 20050105
  2. ANDROGEL [Concomitant]
  3. DESMOPRESSIN (DESMOPRESSIN ACETATE) [Concomitant]
  4. HYDROCORTISONE (HYDROCORTISIONE) [Concomitant]
  5. LEVOXYL [Concomitant]

REACTIONS (14)
  - BLOOD PRESSURE INADEQUATELY CONTROLLED [None]
  - BRADYCARDIA [None]
  - CARDIOVASCULAR DISORDER [None]
  - COAGULOPATHY [None]
  - DILATATION VENTRICULAR [None]
  - DYSPNOEA [None]
  - HEPATIC FAILURE [None]
  - HYPOTENSION [None]
  - LETHARGY [None]
  - MULTI-ORGAN DISORDER [None]
  - REFUSAL OF TREATMENT BY RELATIVE [None]
  - RENAL FAILURE [None]
  - TACHYARRHYTHMIA [None]
  - VENTRICULAR DYSFUNCTION [None]
